FAERS Safety Report 15618425 (Version 2)
Quarter: 2019Q1

REPORT INFORMATION
  Report Type: Report from Study
  Country: US (occurrence: US)
  Receive Date: 20181114
  Receipt Date: 20190226
  Transmission Date: 20190417
  Serious: Yes (Hospitalization)
  Sender: FDA-Public Use
  Company Number: US-OTSUKA-2018_035953

PATIENT
  Sex: Female

DRUGS (2)
  1. TOLVAPTAN [Suspect]
     Active Substance: TOLVAPTAN
     Indication: HYPONATRAEMIA
  2. TOLVAPTAN [Suspect]
     Active Substance: TOLVAPTAN
     Indication: BLOOD OSMOLARITY DECREASED
     Dosage: 15 MG, QW
     Route: 048

REACTIONS (6)
  - Diplopia [Unknown]
  - Headache [Unknown]
  - Thrombosis [Unknown]
  - Cellulitis [Unknown]
  - Inappropriate schedule of product administration [Unknown]
  - Depressed mood [Unknown]
